FAERS Safety Report 6835484-2 (Version None)
Quarter: 2010Q3

REPORT INFORMATION
  Report Type: 
  Country: None (occurrence: None)
  Receive Date: 20100713
  Receipt Date: 20100629
  Transmission Date: 20110219
  Serious: Yes (Hospitalization)
  Sender: FDA-Public Use
  Company Number: PHHY2010IT43481

PATIENT
  Sex: Male
  Weight: 95 kg

DRUGS (2)
  1. ALISKIREN ALI+ [Suspect]
     Indication: HYPERTENSION
     Dosage: 150 MG
     Route: 048
     Dates: start: 20100505, end: 20100530
  2. LOSAPREX [Concomitant]

REACTIONS (2)
  - HYPERGLYCAEMIA [None]
  - HYPERKALAEMIA [None]
